FAERS Safety Report 7961825-9 (Version None)
Quarter: 2011Q4

REPORT INFORMATION
  Report Type: 
  Country: None (occurrence: None)
  Receive Date: 20111207
  Receipt Date: 20111207
  Transmission Date: 20120403
  Serious: Yes (Other)
  Sender: FDA-Public Use
  Company Number: None

PATIENT
  Age: 38 Year
  Sex: Female
  Weight: 59.42 kg

DRUGS (1)
  1. CYMBALTA [Suspect]
     Indication: DEPRESSION
     Dosage: 60MG
     Route: 048
     Dates: start: 20111103, end: 20111130

REACTIONS (8)
  - FEAR [None]
  - SENSORY DISTURBANCE [None]
  - HEADACHE [None]
  - NAUSEA [None]
  - APPETITE DISORDER [None]
  - DRUG INEFFECTIVE [None]
  - WITHDRAWAL SYNDROME [None]
  - DECREASED ACTIVITY [None]
